FAERS Safety Report 5023970-X (Version None)
Quarter: 2006Q2

REPORT INFORMATION
  Report Type: 
  Country: None (occurrence: None)
  Receive Date: 20060426
  Receipt Date: 20060209
  Transmission Date: 20061013
  Serious: Yes (Other)
  Sender: FDA-Public Use
  Company Number: 2006021698

PATIENT
  Sex: Male

DRUGS (1)
  1. LYRICA [Suspect]
     Indication: PAIN MANAGEMENT
     Dosage: 75 MG (75 MG, 1 IN 1 D),
     Dates: start: 20060201

REACTIONS (1)
  - VISION BLURRED [None]
